FAERS Safety Report 8564083-X (Version None)
Quarter: 2012Q3

REPORT INFORMATION
  Report Type: 
  Country: None (occurrence: None)
  Receive Date: 20120803
  Receipt Date: 20120724
  Transmission Date: 20120928
  Serious: Yes (Hospitalization)
  Sender: FDA-Public Use
  Company Number: US-BAYER-2012-040005

PATIENT
  Age: 30 Year
  Sex: Female

DRUGS (26)
  1. RISPERDAL [Concomitant]
     Dosage: 4 MG, DAILY
     Route: 048
  2. ZOLOFT [Concomitant]
  3. DIVALPROEX SODIUM [Concomitant]
     Dosage: 250 MG, UNK
     Route: 048
     Dates: start: 20090602
  4. LAMOTRIGINE [Concomitant]
     Dosage: 100 MG, UNK
     Route: 048
     Dates: start: 20090602
  5. LITHIUM CARBONATE [Concomitant]
     Dosage: 300 MG, UNK
     Route: 048
     Dates: start: 20090706
  6. BUPROPION HYDROCHLORIDE [Concomitant]
     Dosage: 150 MG, UNK
     Route: 048
     Dates: start: 20090805
  7. BUSPIRONE HCL [Concomitant]
     Dosage: 5 MG, THREE TIMES DAILY
     Route: 048
  8. LISINOPRIL [Concomitant]
     Dosage: 5 MG, DAILY
     Route: 048
  9. GEODON [Concomitant]
     Dosage: 80 MG, UNK
     Route: 048
     Dates: start: 20090526
  10. PAROXETINE [Concomitant]
     Dosage: 20 MG, UNK
     Route: 048
     Dates: start: 20090623
  11. FLUOXETINE HCL [Concomitant]
     Dosage: 20 MG, UNK
     Route: 048
     Dates: start: 20090706
  12. PROAIR HFA [Concomitant]
     Dosage: 90 ?G, INHALATION
     Route: 045
     Dates: start: 20090725
  13. LAMICTAL [Concomitant]
  14. SYNTHROID [Concomitant]
  15. BUSPAR [Concomitant]
  16. PROZAC [Concomitant]
     Dosage: 60 MG, DAILY
     Route: 048
  17. ZYPREXA [Concomitant]
     Dosage: 10 MG, UNK
     Route: 048
     Dates: start: 20090519
  18. LISINOPRIL [Concomitant]
     Dosage: 20 MG, DAILY
     Route: 048
  19. LISINOPRILHYDROCHLOROTHIAZIDE RATIOPHARM [Concomitant]
     Dosage: 10-12.5
     Route: 048
     Dates: start: 20090630
  20. DETROL [Concomitant]
     Dosage: 2 MG, UNK
     Route: 048
     Dates: start: 20090725
  21. YAZ [Suspect]
     Dosage: UNK
     Dates: start: 20090501, end: 20090801
  22. KLONOPIN [Concomitant]
     Dosage: 0.25 MG, TWICE A DAY
     Route: 048
  23. WELLBUTRIN XL [Concomitant]
  24. ARIXTRA [Concomitant]
  25. LOESTRIN FE 1/20 [Concomitant]
     Dosage: UNK
     Dates: start: 20090519
  26. CLONAZEPAM [Concomitant]

REACTIONS (6)
  - PULMONARY EMBOLISM [None]
  - INJURY [None]
  - EMOTIONAL DISTRESS [None]
  - PAIN [None]
  - GENERAL PHYSICAL HEALTH DETERIORATION [None]
  - ANXIETY [None]
